FAERS Safety Report 18599401 (Version 1)
Quarter: 2020Q4

REPORT INFORMATION
  Report Type: Spontaneous
  Country: DE (occurrence: DE)
  Receive Date: 20201210
  Receipt Date: 20201210
  Transmission Date: 20210114
  Serious: Yes (Hospitalization, Other)
  Sender: FDA-Public Use
  Company Number: DE-ASTRAZENECA-2020SF61531

PATIENT
  Sex: Male

DRUGS (1)
  1. CRESTOR [Suspect]
     Active Substance: ROSUVASTATIN CALCIUM
     Indication: LOW DENSITY LIPOPROTEIN INCREASED
     Dosage: 5.0MG UNKNOWN
     Route: 048

REACTIONS (4)
  - Restless legs syndrome [Unknown]
  - Musculoskeletal stiffness [Unknown]
  - Inguinal hernia [Unknown]
  - Polyneuropathy [Unknown]
